FAERS Safety Report 8160072-8 (Version None)
Quarter: 2012Q1

REPORT INFORMATION
  Report Type: 
  Country: None (occurrence: None)
  Receive Date: 20120223
  Receipt Date: 20120220
  Transmission Date: 20120608
  Serious: Yes (Death, Other)
  Sender: FDA-Public Use
  Company Number: PHHY2012US014996

PATIENT
  Age: 46 Year
  Sex: Female

DRUGS (1)
  1. VANCOMYCIN [Suspect]

REACTIONS (6)
  - SKIN EROSION [None]
  - PURPURA [None]
  - DEATH [None]
  - SKIN EXFOLIATION [None]
  - BLISTER [None]
  - TOXIC EPIDERMAL NECROLYSIS [None]
